FAERS Safety Report 5239550-7 (Version None)
Quarter: 2007Q1

REPORT INFORMATION
  Report Type: 
  Country: None (occurrence: None)
  Receive Date: 20070209
  Receipt Date: 20070206
  Transmission Date: 20070707
  Serious: Yes (Life-Threatening, Hospitalization)
  Sender: FDA-Public Use
  Company Number: 2007-154103-NL

PATIENT
  Age: 27 Year
  Sex: Female

DRUGS (3)
  1. FOLLICLE-STIMULATING HORMONE, HUMAN [Suspect]
     Indication: OVARIAN FAILURE
     Dosage: 75 IU
  2. GNRH-ANTAGONIST [Suspect]
     Indication: OVARIAN FAILURE
     Dosage: 3 MG ONCE
  3. CHORIONIC GONADOTROPIN [Suspect]
     Indication: OVARIAN FAILURE
     Dosage: 5000 IU ONCE

REACTIONS (9)
  - ABORTION SPONTANEOUS [None]
  - ACUTE RESPIRATORY FAILURE [None]
  - ASCITES [None]
  - BLOOD PRESSURE SYSTOLIC INSPIRATORY DECREASED [None]
  - CARDIAC TAMPONADE [None]
  - ECHOCARDIOGRAM ABNORMAL [None]
  - OVARIAN HYPERSTIMULATION SYNDROME [None]
  - OXYGEN SATURATION DECREASED [None]
  - PLEURAL EFFUSION [None]
